FAERS Safety Report 15812371 (Version 1)
Quarter: 2019Q1

REPORT INFORMATION
  Report Type: Spontaneous
  Country: US (occurrence: US)
  Receive Date: 20190110
  Receipt Date: 20190110
  Transmission Date: 20190417
  Serious: Yes (Life-Threatening)
  Sender: FDA-Public Use
  Company Number: None

PATIENT
  Age: 65 Year
  Sex: Female
  Weight: 64.5 kg

DRUGS (1)
  1. ROCURONIUM [Suspect]
     Active Substance: ROCURONIUM BROMIDE
     Indication: HYPOTONIA
     Dosage: ?          OTHER FREQUENCY:ONCE;?
     Route: 040

REACTIONS (5)
  - Circulatory collapse [None]
  - Hypotension [None]
  - Sinus tachycardia [None]
  - Hypoventilation [None]
  - Breath sounds absent [None]

NARRATIVE: CASE EVENT DATE: 20181219
